FAERS Safety Report 4568389-0 (Version None)
Quarter: 2005Q1

REPORT INFORMATION
  Report Type: 
  Country: None (occurrence: None)
  Receive Date: 20050131
  Receipt Date: 20050120
  Transmission Date: 20050727
  Serious: Yes (Other)
  Sender: FDA-Public Use
  Company Number: 2005011611

PATIENT
  Age: 56 Year
  Sex: Female

DRUGS (2)
  1. NEURONTIN [Suspect]
     Indication: EPILEPSY
     Dosage: 1200 MG (400 MG, 3 IN 1 D)
     Dates: start: 20041119, end: 20041214
  2. CARBAMAZEPINE [Suspect]
     Indication: EPILEPSY
     Dosage: 500 MG (2 IN 1 D), ORAL
     Route: 048
     Dates: start: 20041025, end: 20041115

REACTIONS (3)
  - CONDITION AGGRAVATED [None]
  - CYTOLYTIC HEPATITIS [None]
  - HEPATITIS [None]
